FAERS Safety Report 9855395 (Version 1)
Quarter: 2013Q4

REPORT INFORMATION
  Report Type: Spontaneous
  Country: US (occurrence: None)
  Receive Date: 20131226
  Receipt Date: 20131226
  Transmission Date: 20140711
  Serious: Yes (Other)
  Sender: FDA-Public Use
  Company Number: PHEH2012US015435

PATIENT
  Sex: Female

DRUGS (1)
  1. SANDOSTATIN LAR DEPOT (OCTREOTIDE WITH POLY (D L-LACTIDE-CO-GLYCOLIDE)) SUSPENSION [Suspect]
     Indication: NEUROENDOCRINE TUMOUR
     Dosage: , INTRAMUSCULAR
     Route: 030

REACTIONS (1)
  - Malignant neoplasm progression [None]
